FAERS Safety Report 7964251-1 (Version None)
Quarter: 2011Q4

REPORT INFORMATION
  Report Type: 
  Country: None (occurrence: None)
  Receive Date: 20111208
  Receipt Date: 20111129
  Transmission Date: 20120403
  Serious: Yes (Other)
  Sender: FDA-Public Use
  Company Number: US-BAYER-2011-089609

PATIENT
  Age: 33 Year
  Sex: Female

DRUGS (3)
  1. MIRENA [Suspect]
     Indication: CONTRACEPTION
     Dosage: 20 MCG/24HR, CONT
     Route: 015
     Dates: start: 20050101, end: 20110304
  2. ORAL CONTRACEPTIVE NOS [Concomitant]
  3. MIRENA [Suspect]
     Dosage: 20 MCG/24HR, CONT
     Route: 015
     Dates: start: 20110304, end: 20110409

REACTIONS (3)
  - DEVICE DISLOCATION [None]
  - THROMBOSIS [None]
  - OVARIAN CYST [None]
